FAERS Safety Report 26085415 (Version 2)
Quarter: 2025Q4

REPORT INFORMATION
  Report Type: Spontaneous
  Country: CN (occurrence: CN)
  Receive Date: 20251125
  Receipt Date: 20251231
  Transmission Date: 20260118
  Serious: Yes (Other)
  Sender: AMGEN
  Company Number: CN-AMGEN-CHNSP2025225898

PATIENT
  Age: 72 Year
  Sex: Male

DRUGS (7)
  1. KYPROLIS [Suspect]
     Active Substance: CARFILZOMIB
     Indication: Plasma cell myeloma
     Dosage: UNK
     Route: 065
     Dates: start: 20251020
  2. KYPROLIS [Suspect]
     Active Substance: CARFILZOMIB
     Dosage: UNK
     Route: 065
     Dates: start: 20251119
  3. DEXAMETHASONE [Concomitant]
     Active Substance: DEXAMETHASONE
     Indication: Plasma cell myeloma
     Dosage: UNK
     Route: 065
     Dates: start: 20251020
  4. SELINEXOR [Concomitant]
     Active Substance: SELINEXOR
     Indication: Plasma cell myeloma
     Dosage: UNK
     Route: 065
     Dates: start: 20251020
  5. EPINASTINE [Concomitant]
     Active Substance: EPINASTINE HYDROCHLORIDE
     Indication: Plasma cell myeloma
     Dosage: UNK
     Route: 065
     Dates: start: 20251020
  6. POMALIDOMIDE [Concomitant]
     Active Substance: POMALIDOMIDE
     Indication: Plasma cell myeloma
     Dosage: UNK
     Route: 065
  7. DULANERMIN [Concomitant]
     Active Substance: DULANERMIN
     Indication: Plasma cell myeloma
     Dosage: UNK
     Route: 065

REACTIONS (12)
  - Myelosuppression [Unknown]
  - Leukopenia [Unknown]
  - Disease progression [Unknown]
  - Myocardial strain imaging abnormal [Unknown]
  - Sinus bradycardia [Unknown]
  - Hepatic cyst [Unknown]
  - Breath sounds abnormal [Unknown]
  - Electrolyte imbalance [Unknown]
  - Hyperuricaemia [Unknown]
  - Hypocalcaemia [Unknown]
  - Hyponatraemia [Unknown]
  - Hypophosphataemia [Unknown]

NARRATIVE: CASE EVENT DATE: 20251021
